FAERS Safety Report 8496621-X (Version None)
Quarter: 2012Q3

REPORT INFORMATION
  Report Type: 
  Country: None (occurrence: None)
  Receive Date: 20120709
  Receipt Date: 20120705
  Transmission Date: 20120928
  Serious: Yes (Death)
  Sender: FDA-Public Use
  Company Number: PT-JNJFOC-20120610433

PATIENT
  Age: 42 Year
  Sex: Male

DRUGS (2)
  1. INVEGA [Suspect]
     Indication: SCHIZOPHRENIA
     Route: 048
  2. VENLAFAXINE [Concomitant]
     Indication: DEPRESSION
     Route: 065

REACTIONS (2)
  - SYNCOPE [None]
  - DEATH [None]
